FAERS Safety Report 21610779 (Version 1)
Quarter: 2022Q4

REPORT INFORMATION
  Report Type: Spontaneous
  Country: US (occurrence: None)
  Receive Date: 20221117
  Receipt Date: 20221117
  Transmission Date: 20230112
  Serious: Yes (Death)
  Sender: FDA-Public Use
  Company Number: None

PATIENT
  Age: 81 Year
  Sex: Male

DRUGS (7)
  1. REPATHA [Suspect]
     Active Substance: EVOLOCUMAB
     Indication: Hypercholesterolaemia
     Dosage: OTHER FREQUENCY : ONCE EVERY 2 WEEKS;?
     Route: 058
     Dates: start: 20210601, end: 20221101
  2. Tegretol-XR 100mg Tablets [Concomitant]
  3. Nascobal 500mcg Nasal Spray [Concomitant]
  4. Vitamin D 2,000IU Tablets [Concomitant]
  5. QUETIAPINE [Concomitant]
     Active Substance: QUETIAPINE
  6. Metoprolol Tartrate 100mg Tablets [Concomitant]
  7. Vitamin B12 100mcg Tablets [Concomitant]

REACTIONS (1)
  - Death [None]

NARRATIVE: CASE EVENT DATE: 20221101
